FAERS Safety Report 6878621-6 (Version None)
Quarter: 2010Q3

REPORT INFORMATION
  Report Type: 
  Country: None (occurrence: None)
  Receive Date: 20100728
  Receipt Date: 20100714
  Transmission Date: 20110219
  Serious: Yes (Death, Hospitalization)
  Sender: FDA-Public Use
  Company Number: A0866978A

PATIENT
  Age: 43 Year
  Sex: Male
  Weight: 102.3 kg

DRUGS (1)
  1. AVANDIA [Suspect]
     Route: 048
     Dates: start: 20050101, end: 20080801

REACTIONS (3)
  - CORONARY ARTERY DISEASE [None]
  - DEATH [None]
  - MYOCARDIAL INFARCTION [None]
